FAERS Safety Report 19096402 (Version 1)
Quarter: 2021Q2

REPORT INFORMATION
  Report Type: Spontaneous
  Country: DE (occurrence: DE)
  Receive Date: 20210406
  Receipt Date: 20210406
  Transmission Date: 20210717
  Serious: Yes (Hospitalization)
  Sender: FDA-Public Use
  Company Number: DE-ACCORD-222022

PATIENT
  Sex: Female
  Weight: 21 kg

DRUGS (5)
  1. MYCOPHENOLIC ACID. [Suspect]
     Active Substance: MYCOPHENOLIC ACID
     Indication: IMMUNOSUPPRESSANT DRUG THERAPY
     Dosage: DAILY DOSE: 500 MG MILLGRAM(S) EVERY DAYS 2 SEPARATED DOSES
     Route: 048
     Dates: start: 201811
  2. AMLODIPINE [Concomitant]
     Active Substance: AMLODIPINE BESYLATE
     Indication: ESSENTIAL HYPERTENSION
     Dosage: DAILY DOSE: 2.5 MG MILLGRAM(S) EVERY DAYS 2 SEPARATED DOSES
     Route: 048
     Dates: start: 201902
  3. PREDNISOLONE. [Suspect]
     Active Substance: PREDNISOLONE
     Indication: IMMUNOSUPPRESSANT DRUG THERAPY
     Dosage: DAILY DOSE: 2 MG MILLGRAM(S) EVERY DAYS
     Route: 048
     Dates: start: 201811
  4. SANDIMMUN [Suspect]
     Active Substance: CYCLOSPORINE
     Indication: IMMUNOSUPPRESSANT DRUG THERAPY
     Dosage: DAILY DOSE: 270 MG MILLGRAM(S) EVERY DAYS 2 SEPARATED DOSES
     Route: 048
     Dates: start: 201811
  5. ENALAPRIL [Concomitant]
     Active Substance: ENALAPRIL
     Indication: ESSENTIAL HYPERTENSION
     Dosage: DAILY DOSE: 2.5 MG MILLGRAM(S) EVERY DAYS 2 SEPARATED DOSES
     Route: 048
     Dates: start: 201603

REACTIONS (4)
  - Fatigue [Recovered/Resolved]
  - Somnolence [Recovered/Resolved]
  - Pyrexia [Recovered/Resolved]
  - Pneumonia [Recovered/Resolved]

NARRATIVE: CASE EVENT DATE: 20190712
